FAERS Safety Report 6845799-X (Version None)
Quarter: 2010Q3

REPORT INFORMATION
  Report Type: 
  Country: None (occurrence: None)
  Receive Date: 20100715
  Receipt Date: 20071219
  Transmission Date: 20110219
  Serious: No
  Sender: FDA-Public Use
  Company Number: US-PFIZER INC-2007072670

PATIENT
  Sex: Male
  Weight: 78 kg

DRUGS (1)
  1. CHANTIX [Suspect]
     Indication: SMOKING CESSATION THERAPY
     Dates: start: 20070101, end: 20070829

REACTIONS (4)
  - DISTURBANCE IN ATTENTION [None]
  - EUPHORIC MOOD [None]
  - FEELING ABNORMAL [None]
  - HEART RATE INCREASED [None]
